FAERS Safety Report 25860122 (Version 1)
Quarter: 2025Q3

REPORT INFORMATION
  Report Type: Spontaneous
  Country: EU (occurrence: EU)
  Receive Date: 20250929
  Receipt Date: 20250929
  Transmission Date: 20251020
  Serious: Yes (Other)
  Sender: ALCON
  Company Number: EU-SANTEN OY-2025-SWE-008778

PATIENT

DRUGS (1)
  1. LATANOPROST\NETARSUDIL MESYLATE [Suspect]
     Active Substance: LATANOPROST\NETARSUDIL MESYLATE
     Indication: Glaucoma
     Route: 047
     Dates: start: 202409

REACTIONS (2)
  - Corneal disorder [Recovered/Resolved]
  - Corneal opacity [Recovered/Resolved]

NARRATIVE: CASE EVENT DATE: 20240918
